FAERS Safety Report 23290205 (Version 1)
Quarter: 2023Q4

REPORT INFORMATION
  Report Type: Report from Study
  Country: DE (occurrence: DE)
  Receive Date: 20231213
  Receipt Date: 20231213
  Transmission Date: 20240110
  Serious: Yes (Other)
  Sender: FDA-Public Use
  Company Number: DE-ABBVIE-5531234

PATIENT
  Sex: Male

DRUGS (2)
  1. HUMIRA [Suspect]
     Active Substance: ADALIMUMAB
     Indication: Ankylosing spondylitis
     Dosage: FORM STRENGTH: 40 MILLIGRAM
     Route: 058
     Dates: start: 20120228
  2. HUMIRA [Suspect]
     Active Substance: ADALIMUMAB
     Indication: Crohn^s disease

REACTIONS (6)
  - Retinal detachment [Recovered/Resolved with Sequelae]
  - C-reactive protein increased [Recovered/Resolved]
  - Post procedural haemorrhage [Recovered/Resolved]
  - Photopsia [Not Recovered/Not Resolved]
  - Dry eye [Not Recovered/Not Resolved]
  - Retinal tear [Unknown]

NARRATIVE: CASE EVENT DATE: 20180101
